FAERS Safety Report 12325830 (Version 1)
Quarter: 2016Q2

REPORT INFORMATION
  Report Type: Spontaneous
  Country: IN (occurrence: IN)
  Receive Date: 20160503
  Receipt Date: 20160503
  Transmission Date: 20160815
  Serious: Yes (Other)
  Sender: FDA-Public Use
  Company Number: IN-CIPLA LTD.-2016IN04410

PATIENT

DRUGS (2)
  1. PACLITAXEL. [Suspect]
     Active Substance: PACLITAXEL
     Indication: SQUAMOUS CELL CARCINOMA OF THE CERVIX
     Dosage: 175 MG/M2, EVERY 21 DAYS
     Route: 065
  2. CARBOPLATIN. [Suspect]
     Active Substance: CARBOPLATIN
     Indication: SQUAMOUS CELL CARCINOMA OF THE CERVIX
     Dosage: AUC-5, EVERY 21 DAYS
     Route: 065

REACTIONS (5)
  - Vaginal discharge [Unknown]
  - Rectal abscess [Unknown]
  - Pyrexia [Unknown]
  - Hypokalaemia [Recovered/Resolved]
  - Dizziness [Recovered/Resolved]
